FAERS Safety Report 11427736 (Version 3)
Quarter: 2015Q3

REPORT INFORMATION
  Report Type: Spontaneous
  Country: SK (occurrence: SK)
  Receive Date: 20150828
  Receipt Date: 20150930
  Transmission Date: 20151125
  Serious: Yes (Other)
  Sender: FDA-Public Use
  Company Number: SK-AMGEN-SVKSP2015087308

PATIENT
  Sex: Female

DRUGS (11)
  1. LUSOPRESS [Concomitant]
     Active Substance: NITRENDIPINE
     Indication: HYPERTENSION
     Dosage: AT HALF TABLET IN THE EVENING
  2. CALTRATE WITH VITAMIN D [Concomitant]
     Active Substance: CALCIUM CARBONATE\VITAMIN D
     Indication: OSTEOPENIA
     Dosage: 1 DF, UNK
  3. ACIDUM FOLICUM [Concomitant]
     Active Substance: FOLIC ACID
     Indication: RHEUMATOID ARTHRITIS
     Dosage: 2 TABLETS 1X/WEEKLY
  4. CALTRATE WITH VITAMIN D [Concomitant]
     Active Substance: CALCIUM CARBONATE\VITAMIN D
     Indication: OSTEOPENIA
     Dosage: 1 DF, UNK
  5. MOXOSTAD [Concomitant]
     Indication: HYPERTENSION
     Dosage: 0.3 MG, ONCE IN THE EVENING
  6. METOTREXAT [Concomitant]
     Active Substance: METHOTREXATE SODIUM
     Indication: RHEUMATOID ARTHRITIS
     Dosage: 15 MG, 1X WEEKLY
     Route: 048
  7. FLUGALIN [Concomitant]
     Indication: PAIN
     Dosage: 50 MG, AS NEEDED
  8. LIPANTHYL [Concomitant]
     Active Substance: FENOFIBRATE
     Indication: HYPERLIPIDAEMIA
     Dosage: 145 MG, 1 TABLET IN THE EVENING
  9. VITAMIN C [Concomitant]
     Active Substance: ASCORBIC ACID
     Dosage: 1 TABLET DAILY
  10. PERINDOCOMBI [Concomitant]
     Indication: HYPERTENSION
     Dosage: 4/1,25 MG 1 TABLET IN THE MORNING
  11. ENBREL [Suspect]
     Active Substance: ETANERCEPT
     Indication: RHEUMATOID ARTHRITIS
     Dosage: 50 MG, 1X WEEKLY
     Route: 058
     Dates: start: 20071123

REACTIONS (2)
  - Polyneuropathy [Not Recovered/Not Resolved]
  - Infection [Unknown]
